FAERS Safety Report 16088536 (Version 4)
Quarter: 2019Q4

REPORT INFORMATION
  Report Type: Spontaneous
  Country: US (occurrence: US)
  Receive Date: 20190319
  Receipt Date: 20191223
  Transmission Date: 20200122
  Serious: No
  Sender: FDA-Public Use
  Company Number: US-PFIZER INC-2019114684

PATIENT
  Age: 45 Year
  Sex: Female

DRUGS (4)
  1. XELJANZ XR [Suspect]
     Active Substance: TOFACITINIB CITRATE
     Dosage: 11 MG, 2X/DAY (BID)
     Route: 048
     Dates: start: 20191021
  2. XELJANZ XR [Suspect]
     Active Substance: TOFACITINIB CITRATE
     Dosage: 11 MG, 2X/DAY
     Route: 048
     Dates: start: 20190101
  3. XELJANZ XR [Suspect]
     Active Substance: TOFACITINIB CITRATE
     Dosage: 11 MG
     Dates: start: 20181101
  4. OTEZLA [Concomitant]
     Active Substance: APREMILAST
     Dosage: 30 MG, UNK

REACTIONS (3)
  - Onychoclasis [Unknown]
  - Prescribed overdose [Unknown]
  - Madarosis [Unknown]

NARRATIVE: CASE EVENT DATE: 20190308
